FAERS Safety Report 7922889-1 (Version None)
Quarter: 2011Q4

REPORT INFORMATION
  Report Type: 
  Country: None (occurrence: None)
  Receive Date: 20111117
  Receipt Date: 20110818
  Transmission Date: 20120403
  Serious: No
  Sender: FDA-Public Use
  Company Number: US-ALLERGAN-1111148US

PATIENT
  Age: 60 Year
  Sex: Female

DRUGS (2)
  1. LASTACAFT [Suspect]
     Indication: EYE ALLERGY
     Dosage: 2 GTT, QD
     Route: 047
  2. LASTACAFT [Suspect]
     Indication: EYE PRURITUS

REACTIONS (2)
  - OCULAR HYPERAEMIA [None]
  - EYE DISCHARGE [None]
